FAERS Safety Report 7729109-1 (Version None)
Quarter: 2011Q3

REPORT INFORMATION
  Report Type: 
  Country: None (occurrence: None)
  Receive Date: 20110906
  Receipt Date: 20110826
  Transmission Date: 20111222
  Serious: Yes (Other)
  Sender: FDA-Public Use
  Company Number: US-US-EMD SERONO, INC.-7079330

PATIENT
  Sex: Male

DRUGS (2)
  1. REBIF [Suspect]
     Indication: PRODUCT USED FOR UNKNOWN INDICATION
     Route: 058
     Dates: start: 20100212, end: 20110603
  2. CYMBALTA [Concomitant]
     Dates: end: 20110603

REACTIONS (1)
  - HEPATOMEGALY [None]
